FAERS Safety Report 22067688 (Version 2)
Quarter: 2023Q1

REPORT INFORMATION
  Report Type: Report from Study
  Country: IT (occurrence: IT)
  Receive Date: 20230307
  Receipt Date: 20230325
  Transmission Date: 20230418
  Serious: Yes (Other)
  Sender: FDA-Public Use
  Company Number: IT-PFIZER INC-202200035883

PATIENT
  Age: 54 Year
  Sex: Male

DRUGS (26)
  1. LEVETIRACETAM [Suspect]
     Active Substance: LEVETIRACETAM
     Indication: Epilepsy
     Dosage: 3000 MILLIGRAM, ONCE A DAY
     Route: 065
     Dates: start: 2018
  2. LEVETIRACETAM [Suspect]
     Active Substance: LEVETIRACETAM
     Indication: Astrocytoma
  3. LEVETIRACETAM [Suspect]
     Active Substance: LEVETIRACETAM
     Indication: Oligodendroglioma
  4. LEVETIRACETAM [Suspect]
     Active Substance: LEVETIRACETAM
     Indication: Anaplastic astrocytoma
  5. LEVETIRACETAM [Suspect]
     Active Substance: LEVETIRACETAM
     Indication: Glioblastoma multiforme
  6. LACOSAMIDE [Suspect]
     Active Substance: LACOSAMIDE
     Indication: Epilepsy
     Dosage: 300 MILLIGRAM, ONCE A DAY
     Route: 065
  7. LACOSAMIDE [Suspect]
     Active Substance: LACOSAMIDE
     Indication: Astrocytoma
  8. LACOSAMIDE [Suspect]
     Active Substance: LACOSAMIDE
     Indication: Oligodendroglioma
  9. LACOSAMIDE [Suspect]
     Active Substance: LACOSAMIDE
     Indication: Anaplastic astrocytoma
  10. LACOSAMIDE [Suspect]
     Active Substance: LACOSAMIDE
     Indication: Glioblastoma multiforme
  11. PHENYTOIN [Suspect]
     Active Substance: PHENYTOIN
     Indication: Epilepsy
     Dosage: 300 MILLIGRAM, ONCE A DAY
     Route: 048
  12. PHENYTOIN [Suspect]
     Active Substance: PHENYTOIN
     Indication: Astrocytoma
  13. PHENYTOIN [Suspect]
     Active Substance: PHENYTOIN
     Indication: Oligodendroglioma
  14. PHENYTOIN [Suspect]
     Active Substance: PHENYTOIN
     Indication: Anaplastic astrocytoma
  15. PHENYTOIN [Suspect]
     Active Substance: PHENYTOIN
     Indication: Glioblastoma multiforme
  16. TEMOZOLOMIDE [Suspect]
     Active Substance: TEMOZOLOMIDE
     Indication: Epilepsy
     Dosage: UNK
     Route: 065
  17. TEMOZOLOMIDE [Suspect]
     Active Substance: TEMOZOLOMIDE
     Indication: Astrocytoma
  18. TEMOZOLOMIDE [Suspect]
     Active Substance: TEMOZOLOMIDE
     Indication: Oligodendroglioma
  19. TEMOZOLOMIDE [Suspect]
     Active Substance: TEMOZOLOMIDE
     Indication: Anaplastic astrocytoma
  20. TEMOZOLOMIDE [Suspect]
     Active Substance: TEMOZOLOMIDE
     Indication: Glioblastoma multiforme
  21. ESLICARBAZEPINE [Suspect]
     Active Substance: ESLICARBAZEPINE
     Indication: Astrocytoma
     Dosage: 400 MILLIGRAM, DAILY
     Route: 065
     Dates: start: 201812
  22. ESLICARBAZEPINE [Suspect]
     Active Substance: ESLICARBAZEPINE
     Indication: Epilepsy
     Dosage: 1200 MILLIGRAM, DAILY
     Route: 065
  23. ESLICARBAZEPINE [Suspect]
     Active Substance: ESLICARBAZEPINE
     Indication: Oligodendroglioma
     Dosage: 800 MILLIGRAM, DAILY
     Route: 065
  24. ESLICARBAZEPINE [Suspect]
     Active Substance: ESLICARBAZEPINE
     Indication: Anaplastic astrocytoma
  25. ESLICARBAZEPINE [Suspect]
     Active Substance: ESLICARBAZEPINE
     Indication: Glioblastoma multiforme
  26. FOTEMUSTINE [Concomitant]
     Active Substance: FOTEMUSTINE
     Indication: Product used for unknown indication
     Dosage: UNK
     Route: 065

REACTIONS (1)
  - Drug ineffective [Unknown]
